FAERS Safety Report 16144431 (Version 2)
Quarter: 2019Q3

REPORT INFORMATION
  Report Type: Report from Study
  Country: None (occurrence: US)
  Receive Date: 20190401
  Receipt Date: 20190822
  Transmission Date: 20191004
  Serious: Yes (Hospitalization, Other)
  Sender: FDA-Public Use
  Company Number: US-ABBVIE-19K-163-2727698-00

PATIENT
  Age: 34 Year
  Sex: Male
  Weight: 122.58 kg

DRUGS (1)
  1. HUMIRA [Suspect]
     Active Substance: ADALIMUMAB
     Indication: PSORIASIS
     Route: 058

REACTIONS (6)
  - Immunosuppression [Unknown]
  - Cellulitis [Recovering/Resolving]
  - Phlebitis [Unknown]
  - Pulmonary thrombosis [Recovered/Resolved with Sequelae]
  - Thrombosis [Unknown]
  - Intracardiac thrombus [Recovered/Resolved with Sequelae]

NARRATIVE: CASE EVENT DATE: 20190201
